FAERS Safety Report 8815064 (Version 1)
Quarter: 2012Q4

REPORT INFORMATION
  Report Type: 
  Country: US (occurrence: US)
  Receive Date: 20120928
  Receipt Date: 20120928
  Transmission Date: 20130627
  Serious: Yes (Death)
  Sender: FDA-Public Use
  Company Number: US-ROCHE-1124921

PATIENT
  Sex: Female

DRUGS (6)
  1. HERCEPTIN [Suspect]
     Indication: PRODUCT USED FOR UNKNOWN INDICATION
     Dosage: IVPB
     Route: 065
     Dates: start: 19990106
  2. BENADRYL [Concomitant]
     Dosage: IVPB
     Route: 065
  3. ZANTAC [Concomitant]
     Dosage: IVPB
     Route: 065
  4. DECADRON [Concomitant]
     Dosage: IVPB
     Route: 065
  5. ZOFRAN [Concomitant]
     Dosage: IVPB
     Route: 065
  6. TAXOL [Concomitant]
     Dosage: IVPB
     Route: 065

REACTIONS (1)
  - Death [Fatal]
